FAERS Safety Report 17955911 (Version 1)
Quarter: 2020Q2

REPORT INFORMATION
  Report Type: Spontaneous
  Country: US (occurrence: US)
  Receive Date: 20200626
  Receipt Date: 20200626
  Transmission Date: 20200714
  Serious: Yes (Hospitalization)
  Sender: FDA-Public Use
  Company Number: None

PATIENT
  Age: 50 Year
  Sex: Female

DRUGS (1)
  1. OCTREOTIDE 250MCG/ML TEVA [Suspect]
     Active Substance: OCTREOTIDE
     Indication: CARCINOID SYNDROME
     Route: 058
     Dates: start: 20190710

REACTIONS (1)
  - Hospitalisation [None]
